FAERS Safety Report 9840080 (Version 1)
Quarter: 2014Q1

REPORT INFORMATION
  Report Type: Spontaneous
  Country: US (occurrence: US)
  Receive Date: 20140124
  Receipt Date: 20140124
  Transmission Date: 20141002
  Serious: Yes (Death, Other)
  Sender: FDA-Public Use
  Company Number: US-SHIRE-ALL1-2014-00511

PATIENT
  Age: 21 Year
  Sex: Male
  Weight: 95.24 kg

DRUGS (2)
  1. VYVANSE [Suspect]
     Indication: ATTENTION DEFICIT/HYPERACTIVITY DISORDER
     Dosage: UNK, UNKNOWN
     Route: 048
     Dates: start: 201311
  2. ANTIBIOTICS [Concomitant]
     Indication: VASCULITIS
     Dosage: UNK, UNKNOWN
     Route: 065
     Dates: start: 201311

REACTIONS (2)
  - Completed suicide [Fatal]
  - Mania [Recovered/Resolved]
